FAERS Safety Report 17192189 (Version 2)
Quarter: 2020Q4

REPORT INFORMATION
  Report Type: Report from Study
  Country: US (occurrence: US)
  Receive Date: 20191223
  Receipt Date: 20201110
  Transmission Date: 20210113
  Serious: Yes (Hospitalization)
  Sender: FDA-Public Use
  Company Number: US-ELI_LILLY_AND_COMPANY-US201912010078

PATIENT
  Sex: Female

DRUGS (1)
  1. HUMULIN R U-500 KWIKPEN [Suspect]
     Active Substance: INSULIN HUMAN
     Indication: PRODUCT USED FOR UNKNOWN INDICATION
     Dosage: 500 U, DAILY
     Route: 058

REACTIONS (4)
  - Pulmonary oedema [Unknown]
  - Chronic obstructive pulmonary disease [Unknown]
  - Skin ulcer [Unknown]
  - Oedema peripheral [Unknown]
